FAERS Safety Report 7888058-9 (Version None)
Quarter: 2011Q4

REPORT INFORMATION
  Report Type: 
  Country: None (occurrence: None)
  Receive Date: 20111101
  Receipt Date: 20111101
  Transmission Date: 20120403
  Serious: Yes (Life-Threatening)
  Sender: FDA-Public Use
  Company Number: None

PATIENT
  Age: 76 Year
  Sex: Male
  Weight: 85 kg

DRUGS (1)
  1. FUROSEMIDE TAB 40MG  EVERY MORNING ORAL ROXANE 00054429931 [Suspect]
     Indication: CARDIAC FAILURE CONGESTIVE
     Dosage: 40 MG EVERY MORNING, ORAL
     Route: 048
     Dates: start: 20111010, end: 20111016

REACTIONS (3)
  - WEIGHT INCREASED [None]
  - DRUG EFFECT DECREASED [None]
  - PRODUCT SUBSTITUTION ISSUE [None]
